FAERS Safety Report 9595349 (Version 2)
Quarter: 2013Q4

REPORT INFORMATION
  Report Type: Spontaneous
  Country: US (occurrence: US)
  Receive Date: 20131004
  Receipt Date: 20131014
  Transmission Date: 20140711
  Serious: No
  Sender: FDA-Public Use
  Company Number: US-PFIZER INC-2013281052

PATIENT
  Sex: Male

DRUGS (1)
  1. DICLOFENAC SODIUM/MISOPROSTOL [Suspect]

REACTIONS (2)
  - Product physical issue [Unknown]
  - Drug effect incomplete [Unknown]
